FAERS Safety Report 7538133-3 (Version None)
Quarter: 2011Q2

REPORT INFORMATION
  Report Type: 
  Country: None (occurrence: None)
  Receive Date: 20110609
  Receipt Date: 20011123
  Transmission Date: 20111010
  Serious: Yes (Death, Hospitalization)
  Sender: FDA-Public Use
  Company Number: PHBS2001CA08458

PATIENT
  Sex: Male

DRUGS (1)
  1. CLOZAPINE [Suspect]
     Indication: SCHIZOPHRENIA
     Route: 048
     Dates: start: 19990730, end: 20010815

REACTIONS (3)
  - DEEP VEIN THROMBOSIS [None]
  - ASPIRATION [None]
  - MYOCARDIAL INFARCTION [None]
